FAERS Safety Report 6277931-3 (Version None)
Quarter: 2009Q3

REPORT INFORMATION
  Report Type: 
  Country: None (occurrence: None)
  Receive Date: 20090722
  Receipt Date: 20090703
  Transmission Date: 20100115
  Serious: Yes (Hospitalization)
  Sender: FDA-Public Use
  Company Number: FR-GENENTECH-287194

PATIENT

DRUGS (8)
  1. AVASTIN [Suspect]
     Indication: NEOPLASM MALIGNANT
     Dosage: 550 MG, UNK
     Route: 065
     Dates: start: 20090616, end: 20090616
  2. OXALIPLATIN [Suspect]
     Indication: NEOPLASM MALIGNANT
     Dosage: 170 MG, UNK
     Route: 065
     Dates: start: 20090616, end: 20090616
  3. LEUCOVORIN CALCIUM [Suspect]
     Indication: NEOPLASM MALIGNANT
     Dosage: 800 MG, UNK
     Route: 065
     Dates: start: 20090616, end: 20090616
  4. FLUOROURACIL [Suspect]
     Indication: NEOPLASM MALIGNANT
     Dosage: 800 MG, UNK
     Route: 065
     Dates: start: 20090616, end: 20090616
  5. BLINDED STUDY DRUG [Suspect]
     Indication: PROPHYLAXIS
     Dosage: UNK
     Route: 065
     Dates: start: 20090616, end: 20090616
  6. TAZOCIN [Concomitant]
     Indication: DRUG USE FOR UNKNOWN INDICATION
     Dosage: UNK
     Dates: start: 20090619, end: 20090626
  7. COVERSYL [Concomitant]
     Indication: DRUG USE FOR UNKNOWN INDICATION
     Dosage: UNK
     Dates: start: 20090619
  8. GENTAMYCIN SULFATE [Concomitant]
     Indication: DRUG USE FOR UNKNOWN INDICATION

REACTIONS (1)
  - PYREXIA [None]
